FAERS Safety Report 17633281 (Version 1)
Quarter: 2020Q2

REPORT INFORMATION
  Report Type: Report from Study
  Country: US (occurrence: US)
  Receive Date: 20200406
  Receipt Date: 20200406
  Transmission Date: 20200713
  Serious: Yes (Hospitalization)
  Sender: FDA-Public Use
  Company Number: US-CELGENEUS-USA-20200400149

PATIENT
  Age: 75 Year
  Sex: Male
  Weight: 87.17 kg

DRUGS (6)
  1. BORTEZOMIB. [Suspect]
     Active Substance: BORTEZOMIB
     Dosage: 2.8 MILLIGRAM
     Route: 058
     Dates: start: 20111108, end: 20120119
  2. DEXAMETHASONE ORAL [Suspect]
     Active Substance: DEXAMETHASONE
     Indication: PLASMA CELL MYELOMA
     Dosage: 40 MILLIGRAM
     Route: 048
     Dates: start: 20111008, end: 20120206
  3. REVLIMID [Suspect]
     Active Substance: LENALIDOMIDE
     Indication: PLASMA CELL MYELOMA
     Dosage: 25 MILLIGRAM
     Route: 048
     Dates: start: 20111108, end: 20120206
  4. AMPICILLIN [Concomitant]
     Active Substance: AMPICILLIN
     Indication: PRODUCT USED FOR UNKNOWN INDICATION
     Route: 065
  5. BORTEZOMIB. [Suspect]
     Active Substance: BORTEZOMIB
     Indication: PLASMA CELL MYELOMA
     Dosage: 1.3 MILLIGRAM
     Route: 041
     Dates: start: 20111108, end: 20120119
  6. AUGMENTIN [Concomitant]
     Active Substance: AMOXICILLIN\CLAVULANATE POTASSIUM
     Indication: PRODUCT USED FOR UNKNOWN INDICATION
     Route: 048

REACTIONS (1)
  - Acute kidney injury [Not Recovered/Not Resolved]

NARRATIVE: CASE EVENT DATE: 20150926
